FAERS Safety Report 7344429-0 (Version None)
Quarter: 2011Q1

REPORT INFORMATION
  Report Type: 
  Country: None (occurrence: None)
  Receive Date: 20110310
  Receipt Date: 20101201
  Transmission Date: 20110831
  Serious: No
  Sender: FDA-Public Use
  Company Number: A0897275A

PATIENT
  Age: 44 Year
  Sex: Male

DRUGS (1)
  1. NICORETTE (MINT) [Suspect]
     Dates: start: 20101123, end: 20101123

REACTIONS (8)
  - MALAISE [None]
  - PAIN IN EXTREMITY [None]
  - THROAT IRRITATION [None]
  - RASH ERYTHEMATOUS [None]
  - VOMITING [None]
  - DYSPEPSIA [None]
  - PRURITUS [None]
  - ABDOMINAL PAIN UPPER [None]
